FAERS Safety Report 21655198 (Version 2)
Quarter: 2023Q1

REPORT INFORMATION
  Report Type: Spontaneous
  Country: US (occurrence: US)
  Receive Date: 20221129
  Receipt Date: 20230119
  Transmission Date: 20230417
  Serious: No
  Sender: FDA-Public Use
  Company Number: US-GSKCCFUS-Case-01564989_AE-88469

PATIENT
  Age: 67 Year
  Sex: Female

DRUGS (1)
  1. TRELEGY ELLIPTA [Suspect]
     Active Substance: FLUTICASONE FUROATE\UMECLIDINIUM BROMIDE\VILANTEROL TRIFENATATE
     Indication: Product used for unknown indication
     Dosage: 1 PUFF(S), Z (3 TIMES A WEEK) (200/62.5/25 MCG)
     Route: 055
     Dates: start: 20221114

REACTIONS (3)
  - Arthralgia [Not Recovered/Not Resolved]
  - Product prescribing error [Unknown]
  - Inappropriate schedule of product administration [Unknown]

NARRATIVE: CASE EVENT DATE: 20221114
